FAERS Safety Report 8385768-4 (Version None)
Quarter: 2012Q2

REPORT INFORMATION
  Report Type: 
  Country: None (occurrence: None)
  Receive Date: 20120523
  Receipt Date: 20120523
  Transmission Date: 20120825
  Serious: Yes (Life-Threatening, Hospitalization)
  Sender: FDA-Public Use
  Company Number: None

PATIENT
  Age: 74 Year
  Sex: Male
  Weight: 79.2 kg

DRUGS (1)
  1. HYDROXYUREA [Suspect]
     Indication: MYELOFIBROSIS
     Dosage: 1000 MG BID PO
     Route: 048
     Dates: start: 20120406, end: 20120418

REACTIONS (5)
  - ANAEMIA [None]
  - RASH [None]
  - CONTUSION [None]
  - PETECHIAE [None]
  - THROMBOCYTOPENIA [None]
